FAERS Safety Report 16019789 (Version 1)
Quarter: 2019Q1

REPORT INFORMATION
  Report Type: Spontaneous
  Country: US (occurrence: US)
  Receive Date: 20190228
  Receipt Date: 20190228
  Transmission Date: 20190418
  Serious: No
  Sender: FDA-Public Use
  Company Number: US-PFIZER INC-2018200997

PATIENT
  Age: 7 Year
  Sex: Female

DRUGS (3)
  1. GENOTROPIN [Suspect]
     Active Substance: SOMATROPIN
     Dosage: UNK
  2. GENOTROPIN [Suspect]
     Active Substance: SOMATROPIN
     Dosage: 0.8 MG, DAILY
     Dates: start: 20180320
  3. GENOTROPIN [Suspect]
     Active Substance: SOMATROPIN
     Dosage: 0.9 MG, DAILY

REACTIONS (5)
  - Serum ferritin increased [Unknown]
  - Thyroxine decreased [Unknown]
  - Blood iron decreased [Unknown]
  - Product dose omission [Unknown]
  - Iron binding capacity total decreased [Unknown]

NARRATIVE: CASE EVENT DATE: 20190109
